FAERS Safety Report 10566596 (Version 1)
Quarter: 2014Q4

REPORT INFORMATION
  Report Type: Spontaneous
  Country: US (occurrence: US)
  Receive Date: 20141105
  Receipt Date: 20141105
  Transmission Date: 20150529
  Serious: No
  Sender: FDA-Public Use
  Company Number: US-PFIZER INC-2014305560

PATIENT
  Age: 78 Year
  Sex: Female
  Weight: 41.9 kg

DRUGS (14)
  1. CLOTRIMAZOLE. [Concomitant]
     Active Substance: CLOTRIMAZOLE
     Dosage: 10 MG, FIVE TIMES DAILY
  2. MIRTAZAPINE. [Concomitant]
     Active Substance: MIRTAZAPINE
     Dosage: 30 MG, 1X/DAY (AT BEDTIME)
  3. DILTIAZEM [Concomitant]
     Active Substance: DILTIAZEM
     Dosage: 60 (UNITS UNKNOWN), EVERY SIX HOURS
  4. DOCUSATE [Concomitant]
     Active Substance: DOCUSATE
     Dosage: 200 MG, 2X/DAY
  5. MELATONIN [Concomitant]
     Active Substance: MELATONIN
     Dosage: 3 MG, DAILY
  6. TIKOSYN [Suspect]
     Active Substance: DOFETILIDE
     Dosage: 500 UG, 2X/DAY
     Dates: start: 201410
  7. BISACODYL. [Concomitant]
     Active Substance: BISACODYL
     Dosage: 10 MG, DAILY
  8. LISINOPRIL. [Concomitant]
     Active Substance: LISINOPRIL
     Dosage: 5 MG, DAILY
  9. ATORVASTATIN [Concomitant]
     Active Substance: ATORVASTATIN
     Dosage: 40 MG, DAILY
  10. TYLENOL [Concomitant]
     Active Substance: ACETAMINOPHEN
     Dosage: UNK
  11. ASPIRIN. [Concomitant]
     Active Substance: ASPIRIN
     Dosage: 325 (UNIT UNKNOWN) DAILY
  12. FUROSEMIDE. [Concomitant]
     Active Substance: FUROSEMIDE
     Dosage: 20 MG, DAILY
  13. LEVOTHYROXINE [Concomitant]
     Active Substance: LEVOTHYROXINE
     Dosage: 100 UG, DAILY
  14. METOPROLOL TARTRATE. [Concomitant]
     Active Substance: METOPROLOL TARTRATE
     Dosage: 75 MG, 2X/DAY

REACTIONS (2)
  - Wrong technique in drug usage process [Not Recovered/Not Resolved]
  - Dysphagia [Not Recovered/Not Resolved]
